FAERS Safety Report 7793114-X (Version None)
Quarter: 2011Q3

REPORT INFORMATION
  Report Type: 
  Country: None (occurrence: None)
  Receive Date: 20110930
  Receipt Date: 20110930
  Transmission Date: 20111222
  Serious: Yes (Life-Threatening, Hospitalization)
  Sender: FDA-Public Use
  Company Number: None

PATIENT
  Sex: Male
  Weight: 125.1928 kg

DRUGS (2)
  1. AVANDIA [Suspect]
  2. DIABINESE [Suspect]
     Indication: DIABETES MELLITUS
     Dosage: 2X A DAY
     Dates: start: 19720101

REACTIONS (1)
  - MYOCARDIAL INFARCTION [None]
